FAERS Safety Report 7973025-7 (Version None)
Quarter: 2011Q4

REPORT INFORMATION
  Report Type: 
  Country: None (occurrence: None)
  Receive Date: 20111213
  Receipt Date: 20111205
  Transmission Date: 20120403
  Serious: Yes (Other)
  Sender: FDA-Public Use
  Company Number: KR-BRISTOL-MYERS SQUIBB COMPANY-16273146

PATIENT
  Age: 55 Year
  Sex: Female

DRUGS (2)
  1. IRINOTECAN HCL [Suspect]
     Indication: RECTAL CANCER
     Dosage: INTERRUPTED AND RESTARTED
  2. CETUXIMAB [Suspect]
     Indication: RECTAL CANCER

REACTIONS (1)
  - PNEUMATOSIS INTESTINALIS [None]
